FAERS Safety Report 6402179-9 (Version None)
Quarter: 2009Q4

REPORT INFORMATION
  Report Type: 
  Country: None (occurrence: None)
  Receive Date: 20091014
  Receipt Date: 20091014
  Transmission Date: 20100525
  Serious: Yes (Life-Threatening)
  Sender: FDA-Public Use
  Company Number: None

PATIENT
  Sex: Male

DRUGS (1)
  1. TRILIPIX [Suspect]
     Indication: HYPERLIPIDAEMIA
     Dosage: 1 TABLET/DAY ONCE ORAL
     Route: 048
     Dates: start: 20090716, end: 20090827

REACTIONS (1)
  - DRUG LEVEL INCREASED [None]
